FAERS Safety Report 5948683-9 (Version None)
Quarter: 2008Q4

REPORT INFORMATION
  Report Type: 
  Country: None (occurrence: None)
  Receive Date: 20081107
  Receipt Date: 20081022
  Transmission Date: 20090506
  Serious: Yes (Hospitalization)
  Sender: FDA-Public Use
  Company Number: 2008PL000175

PATIENT
  Age: 11 Year
  Sex: Female

DRUGS (1)
  1. AZATHIOPRINE [Suspect]
     Indication: CROHN'S DISEASE

REACTIONS (11)
  - ABDOMINAL PAIN [None]
  - ANORECTAL DISORDER [None]
  - EOSINOPHILIC PNEUMONIA [None]
  - HAEMATOCHEZIA [None]
  - ILEITIS [None]
  - LEUKOCYTOSIS [None]
  - LUNG INFILTRATION [None]
  - LUNG NEOPLASM [None]
  - PULMONARY CAVITATION [None]
  - PYREXIA [None]
  - WEIGHT DECREASED [None]
